FAERS Safety Report 7482508-8 (Version None)
Quarter: 2011Q2

REPORT INFORMATION
  Report Type: 
  Country: None (occurrence: None)
  Receive Date: 20110516
  Receipt Date: 20101229
  Transmission Date: 20111010
  Serious: Yes (Hospitalization, Other)
  Sender: FDA-Public Use
  Company Number: US-BAYER-201035897NA

PATIENT
  Age: 38 Year
  Sex: Female
  Weight: 99.773 kg

DRUGS (17)
  1. LISINOPRIL [Concomitant]
     Indication: PRODUCT USED FOR UNKNOWN INDICATION
     Dosage: UNK
     Dates: start: 20090101, end: 20100101
  2. YAZ [Suspect]
     Indication: MOOD SWINGS
  3. NITROFURANTOIN [Concomitant]
     Indication: PRODUCT USED FOR UNKNOWN INDICATION
     Dosage: UNK
     Dates: start: 20080528
  4. NEXIUM [Concomitant]
  5. METFORMIN HCL [Concomitant]
     Indication: PRODUCT USED FOR UNKNOWN INDICATION
     Dosage: UNK
     Dates: start: 20080307
  6. RELAGARD VAGINAL GEL [Concomitant]
  7. HYDROCODONE BITARTRATE AND ACETAMINOPHEN [Concomitant]
  8. YAZ [Suspect]
     Indication: CONTRACEPTION
  9. METRONIDAZOLE [Concomitant]
     Indication: PRODUCT USED FOR UNKNOWN INDICATION
     Dosage: UNK
     Dates: start: 20080828
  10. YAZ [Suspect]
     Indication: PREMENSTRUAL SYNDROME
     Route: 048
     Dates: start: 20071107, end: 20100118
  11. LORAZEPAM [Concomitant]
     Indication: PRODUCT USED FOR UNKNOWN INDICATION
     Dosage: 0.5 MG, UNK
     Dates: start: 20071218
  12. MOTRIN [Concomitant]
     Indication: PRODUCT USED FOR UNKNOWN INDICATION
  13. VITAMIN C [Concomitant]
  14. ANTIBIOTICS [Concomitant]
  15. YAZ [Suspect]
     Indication: MENSTRUAL CYCLE MANAGEMENT
  16. CLONAZEPAM [Concomitant]
     Indication: PRODUCT USED FOR UNKNOWN INDICATION
     Dosage: UNK
     Dates: start: 20080916
  17. DOXYCYCLINE HYCLATE [Concomitant]

REACTIONS (6)
  - CHOLELITHIASIS [None]
  - NAUSEA [None]
  - GALLBLADDER DISORDER [None]
  - VOMITING [None]
  - ABDOMINAL PAIN [None]
  - GALLBLADDER CHOLESTEROLOSIS [None]
